FAERS Safety Report 13615900 (Version 3)
Quarter: 2017Q3

REPORT INFORMATION
  Report Type: Report from Study
  Country: US (occurrence: US)
  Receive Date: 20170606
  Receipt Date: 20170705
  Transmission Date: 20171127
  Serious: Yes (Death, Life-Threatening, Hospitalization, Other)
  Sender: FDA-Public Use
  Company Number: US-PFIZER INC-2017176997

PATIENT
  Age: 51 Year
  Sex: Male
  Weight: 76.3 kg

DRUGS (1)
  1. SUNITINIB MALATE. [Suspect]
     Active Substance: SUNITINIB MALATE
     Indication: PAPILLARY RENAL CELL CARCINOMA
     Dosage: 50 MG, QD ON DAYS 1-28, 42-DAY CYCLE
     Route: 048
     Dates: start: 20170104, end: 20170308

REACTIONS (37)
  - Fatigue [Recovered/Resolved]
  - Hyperuricaemia [Recovered/Resolved]
  - Hyperkalaemia [Recovered/Resolved]
  - Confusional state [Unknown]
  - Proteinuria [Unknown]
  - Acidosis [Unknown]
  - International normalised ratio increased [Recovered/Resolved]
  - Pleural effusion [Unknown]
  - Anaemia [Unknown]
  - Embolism [Unknown]
  - White blood cell count decreased [Recovered/Resolved]
  - Acute kidney injury [Recovering/Resolving]
  - Chronic kidney disease [Unknown]
  - Hyponatraemia [Unknown]
  - Abdominal pain [Unknown]
  - Sinus tachycardia [Unknown]
  - Neutrophil count decreased [Recovered/Resolved]
  - Weight decreased [Unknown]
  - Hypotension [Recovered/Resolved]
  - Blood creatinine increased [Unknown]
  - Neoplasm progression [Fatal]
  - Hypothyroidism [Unknown]
  - Abdominal distension [Unknown]
  - Oedema peripheral [Recovered/Resolved]
  - Anxiety [Unknown]
  - Paraesthesia [Unknown]
  - Lymphocyte count decreased [Recovered/Resolved]
  - Platelet count decreased [Recovered/Resolved]
  - Dyspnoea [Unknown]
  - Constipation [Unknown]
  - Hypoalbuminaemia [Recovered/Resolved]
  - Hypocalcaemia [Recovered/Resolved]
  - Ascites [Unknown]
  - Chromaturia [Unknown]
  - Nausea [Recovered/Resolved]
  - Vomiting [Recovered/Resolved]
  - Spleen disorder [Unknown]

NARRATIVE: CASE EVENT DATE: 20170213
